FAERS Safety Report 22040586 (Version 1)
Quarter: 2023Q1

REPORT INFORMATION
  Report Type: Spontaneous
  Country: JP (occurrence: JP)
  Receive Date: 20230227
  Receipt Date: 20230227
  Transmission Date: 20230418
  Serious: Yes (Other)
  Sender: FDA-Public Use
  Company Number: JP-BAYER-2022A175842

PATIENT
  Age: 7 Year
  Sex: Female
  Weight: 20 kg

DRUGS (3)
  1. LORATADINE [Suspect]
     Active Substance: LORATADINE
     Indication: Rhinitis
     Dosage: 1.0 G, QD
     Route: 048
     Dates: start: 20221227
  2. LORATADINE [Suspect]
     Active Substance: LORATADINE
     Indication: Rhinitis
     Dosage: 0.5 G, QD
     Route: 048
  3. CARBOCYSTEINE [Concomitant]
     Active Substance: CARBOCYSTEINE
     Indication: Rhinitis
     Dosage: 0.6 G, BID
     Route: 048
     Dates: start: 20221227

REACTIONS (2)
  - Delirium [Recovered/Resolved]
  - Sleep talking [Recovered/Resolved]

NARRATIVE: CASE EVENT DATE: 20221227
